FAERS Safety Report 9761038 (Version 2)
Quarter: 2014Q1

REPORT INFORMATION
  Report Type: Spontaneous
  Country: US (occurrence: None)
  Receive Date: 20131212
  Receipt Date: 20140327
  Transmission Date: 20141002
  Serious: Yes (Hospitalization, Other)
  Sender: FDA-Public Use
  Company Number: 2013-US-003481

PATIENT
  Age: 30 Year
  Sex: Female
  Weight: 49.9 kg

DRUGS (6)
  1. XYREM [Suspect]
     Indication: NARCOLEPSY
     Route: 048
     Dates: start: 20131102, end: 201311
  2. XYREM [Suspect]
     Indication: CATAPLEXY
     Route: 048
     Dates: start: 20131102, end: 201311
  3. PROZAC [Suspect]
     Indication: DEPRESSION
  4. PROZAC [Suspect]
     Indication: ATTENTION DEFICIT/HYPERACTIVITY DISORDER
  5. ADDERALL (AMFETAMINE ASPARTATE, AMFETAMINE SULFATE, DEXAMFETAMINE SACCHARATE, DEXAMFETAMINE SULFATE) [Concomitant]
  6. TOPAMAX (TOPIRAMATE) [Concomitant]

REACTIONS (12)
  - Convulsion [None]
  - Chest pain [None]
  - Altered state of consciousness [None]
  - Speech disorder [None]
  - Feeling abnormal [None]
  - Paraesthesia [None]
  - Dyspnoea [None]
  - Headache [None]
  - Muscle tightness [None]
  - Oedema peripheral [None]
  - Memory impairment [None]
  - Psychotic disorder [None]
